FAERS Safety Report 4575302-9 (Version None)
Quarter: 2005Q1

REPORT INFORMATION
  Report Type: 
  Country: None (occurrence: None)
  Receive Date: 20050209
  Receipt Date: 20050127
  Transmission Date: 20050727
  Serious: Yes (Other)
  Sender: FDA-Public Use
  Company Number: NL-JNJFOC-20050106756

PATIENT
  Age: 69 Year
  Sex: Female

DRUGS (9)
  1. REMICADE [Suspect]
     Indication: RHEUMATOID ARTHRITIS
     Route: 042
  2. HUMIRA [Suspect]
     Indication: RHEUMATOID ARTHRITIS
     Route: 058
  3. DURATEARS [Concomitant]
  4. DURATEARS [Concomitant]
  5. DURATEARS [Concomitant]
  6. DURATEARS [Concomitant]
  7. DURATEARS [Concomitant]
  8. CALCIUM GLUCONATE [Concomitant]
     Route: 049
  9. ACETAMINOPHEN [Concomitant]
     Indication: PAIN
     Route: 049

REACTIONS (1)
  - PERIPHERAL T-CELL LYMPHOMA UNSPECIFIED [None]
